FAERS Safety Report 13816694 (Version 1)
Quarter: 2017Q3

REPORT INFORMATION
  Report Type: Spontaneous
  Country: US (occurrence: US)
  Receive Date: 20170731
  Receipt Date: 20170731
  Transmission Date: 20171127
  Serious: No
  Sender: FDA-Public Use
  Company Number: US-JNJFOC-20170527943

PATIENT
  Sex: Female

DRUGS (4)
  1. ZYRTEC [Suspect]
     Active Substance: CETIRIZINE HYDROCHLORIDE
     Indication: ECZEMA
     Dosage: THREE NIGHTS IN A ROW
     Route: 065
  2. ZYRTEC [Suspect]
     Active Substance: CETIRIZINE HYDROCHLORIDE
     Indication: SKIN DISORDER
     Dosage: THREE NIGHTS IN A ROW
     Route: 065
  3. ZYRTEC [Suspect]
     Active Substance: CETIRIZINE HYDROCHLORIDE
     Indication: PRURITUS
     Dosage: THREE NIGHTS IN A ROW
     Route: 065
  4. ZYRTEC [Suspect]
     Active Substance: CETIRIZINE HYDROCHLORIDE
     Indication: SCRATCH
     Dosage: THREE NIGHTS IN A ROW
     Route: 065

REACTIONS (3)
  - Somnolence [Unknown]
  - Therapeutic response unexpected [Unknown]
  - Product use in unapproved indication [Unknown]
